FAERS Safety Report 6113175-3 (Version None)
Quarter: 2009Q1

REPORT INFORMATION
  Report Type: 
  Country: None (occurrence: None)
  Receive Date: 20090312
  Receipt Date: 20090303
  Transmission Date: 20090719
  Serious: Yes (Other)
  Sender: FDA-Public Use
  Company Number: JP-PFIZER INC-2009169944

PATIENT

DRUGS (7)
  1. GENOTROPIN [Suspect]
     Indication: HYPOPITUITARISM
     Dosage: UNK
     Route: 058
     Dates: start: 20080604
  2. NORVASC [Concomitant]
     Dosage: 2.5 MG, 1X/DAY
     Route: 048
  3. LIPITOR [Concomitant]
     Dosage: 5 MG, 1X/DAY
     Route: 048
  4. THYRADIN S [Concomitant]
     Dosage: 75 UG, 1X/DAY
  5. CORTRIL [Concomitant]
     Route: 048
  6. DESMOPRESSIN [Concomitant]
  7. EPADEL [Concomitant]
     Dosage: 1.2 G, 1X/DAY
     Route: 048

REACTIONS (2)
  - CRANIOPHARYNGIOMA [None]
  - NEOPLASM RECURRENCE [None]
